FAERS Safety Report 16165964 (Version 1)
Quarter: 2019Q2

REPORT INFORMATION
  Report Type: Spontaneous
  Country: US (occurrence: US)
  Receive Date: 20190406
  Receipt Date: 20190406
  Transmission Date: 20190711
  Serious: Yes (Other)
  Sender: FDA-Public Use
  Company Number: US-ALEXION PHARMACEUTICALS INC-A201905094

PATIENT
  Age: 68 Year
  Sex: Female

DRUGS (1)
  1. SOLIRIS [Suspect]
     Active Substance: ECULIZUMAB
     Indication: ATYPICAL HAEMOLYTIC URAEMIC SYNDROME
     Dosage: UNK
     Route: 042
     Dates: end: 20190118

REACTIONS (9)
  - Device related infection [Not Recovered/Not Resolved]
  - Loss of consciousness [Unknown]
  - Disorientation [Unknown]
  - Dysarthria [Unknown]
  - Thrombosis [Recovered/Resolved]
  - Dialysis [Recovered/Resolved]
  - Aphasia [Unknown]
  - Cerebrovascular accident [Not Recovered/Not Resolved]
  - Meningococcal infection [Not Recovered/Not Resolved]

NARRATIVE: CASE EVENT DATE: 20190118
